FAERS Safety Report 4696166-9 (Version None)
Quarter: 2005Q2

REPORT INFORMATION
  Report Type: 
  Country: None (occurrence: None)
  Receive Date: 20050620
  Receipt Date: 20050607
  Transmission Date: 20051028
  Serious: Yes (Life-Threatening, Other)
  Sender: FDA-Public Use
  Company Number: 2005084094

PATIENT
  Age: 80 Year
  Sex: Male

DRUGS (2)
  1. FELDENE [Suspect]
     Indication: BACK PAIN
     Dosage: (10 MG ), ORAL
     Route: 048
     Dates: start: 20050401, end: 20050422
  2. RAMIPRIL [Suspect]
     Indication: AORTIC ANEURYSM
     Dosage: 10 MG (10 MG, 1 IN 1 D), ORAL
     Route: 048
     Dates: start: 20040101

REACTIONS (2)
  - DRUG INTERACTION [None]
  - RENAL FAILURE ACUTE [None]
